FAERS Safety Report 5409458-2 (Version None)
Quarter: 2007Q3

REPORT INFORMATION
  Report Type: 
  Country: None (occurrence: None)
  Receive Date: 20070809
  Receipt Date: 20070802
  Transmission Date: 20080115
  Serious: No
  Sender: FDA-Public Use
  Company Number: US-BAXTER-2007BH006880

PATIENT
  Age: 44 Year
  Sex: Female

DRUGS (10)
  1. MEPERIDINE HCL [Suspect]
     Indication: PAIN
     Route: 065
  2. CITALOPRAM [Suspect]
     Indication: DRUG USE FOR UNKNOWN INDICATION
     Route: 065
  3. HYDROMORPHONE HCL [Concomitant]
     Indication: PAIN
     Route: 042
  4. ACETAMINOPHEN AND HYDROCODONE BITARTRATE [Concomitant]
     Indication: PAIN
     Dosage: DOSE UNIT:UNKNOWN
     Route: 048
  5. PROMETHAZINE [Concomitant]
     Indication: NAUSEA
     Route: 042
  6. GATIFLOXACIN [Concomitant]
     Indication: WOUND INFECTION
     Dosage: DOSE UNIT:UNKNOWN
     Route: 065
  7. ZOLPIDEM TARTRATE [Concomitant]
     Indication: DRUG USE FOR UNKNOWN INDICATION
     Route: 065
  8. LANSOPRAZOLE [Concomitant]
     Indication: DRUG USE FOR UNKNOWN INDICATION
     Route: 065
  9. ENOXAPARIN SODIUM [Concomitant]
     Indication: DRUG USE FOR UNKNOWN INDICATION
     Route: 058
  10. FENTANYL TRANSDERMAL SYSTEM [Concomitant]
     Indication: DRUG USE FOR UNKNOWN INDICATION
     Route: 062

REACTIONS (3)
  - DRUG INTERACTION [None]
  - NAUSEA [None]
  - SEROTONIN SYNDROME [None]
